FAERS Safety Report 4879455-4 (Version None)
Quarter: 2005Q4

REPORT INFORMATION
  Report Type: 
  Country: None (occurrence: None)
  Receive Date: 20051209
  Receipt Date: 20050907
  Transmission Date: 20060501
  Serious: Yes (Other)
  Sender: FDA-Public Use
  Company Number: USA-2002-0000134

PATIENT
  Age: 45 Year
  Sex: Male

DRUGS (7)
  1. OXYCONTIN [Suspect]
     Indication: PAIN
     Dosage: ORAL
     Route: 048
     Dates: start: 19980901
  2. OXYCODONE HCL [Suspect]
     Indication: PAIN
     Dosage: 5 MG, Q6H PRN, ORAL
     Route: 048
     Dates: start: 19981103
  3. ORUDIS [Concomitant]
  4. VALIUM [Concomitant]
  5. RELAFEN [Concomitant]
  6. SOMA [Concomitant]
  7. IBUPROFEN [Concomitant]

REACTIONS (12)
  - DRUG ABUSER [None]
  - DRUG DEPENDENCE [None]
  - DRUG WITHDRAWAL SYNDROME [None]
  - FEELING JITTERY [None]
  - FORMICATION [None]
  - HEADACHE [None]
  - MENTAL DISORDER [None]
  - NAUSEA [None]
  - NERVOUSNESS [None]
  - PAIN [None]
  - TREMOR [None]
  - UPPER RESPIRATORY TRACT INFECTION [None]
